FAERS Safety Report 7974060-5 (Version None)
Quarter: 2011Q4

REPORT INFORMATION
  Report Type: 
  Country: None (occurrence: None)
  Receive Date: 20111213
  Receipt Date: 20111110
  Transmission Date: 20120403
  Serious: Yes (Other)
  Sender: FDA-Public Use
  Company Number: DE-GLAXOSMITHKLINE-D0073400A

PATIENT
  Sex: Female

DRUGS (3)
  1. LAMICTAL [Concomitant]
     Indication: EPILEPSY
     Dosage: 600MG PER DAY
     Route: 048
  2. TROBALT [Suspect]
     Indication: EPILEPSY
     Route: 048
  3. KEPPRA [Concomitant]
     Indication: EPILEPSY
     Dosage: 4000MG PER DAY
     Route: 048

REACTIONS (7)
  - SPEECH DISORDER [None]
  - MEMORY IMPAIRMENT [None]
  - AURA [None]
  - APHASIA [None]
  - DISTURBANCE IN ATTENTION [None]
  - DEPRESSED LEVEL OF CONSCIOUSNESS [None]
  - ILLUSION [None]
